FAERS Safety Report 23606776 (Version 3)
Quarter: 2024Q3

REPORT INFORMATION
  Report Type: Spontaneous
  Country: US (occurrence: US)
  Receive Date: 20240307
  Receipt Date: 20240816
  Transmission Date: 20241017
  Serious: Yes (Other)
  Sender: NOVARTIS
  Company Number: US-002147023-NVSC2024US045765

PATIENT

DRUGS (2)
  1. COSENTYX [Suspect]
     Active Substance: SECUKINUMAB
     Indication: Product used for unknown indication
     Dosage: 300 MG, Q4W
     Route: 065
  2. HUMIRA [Concomitant]
     Active Substance: ADALIMUMAB
     Indication: Product used for unknown indication
     Dosage: UNK
     Route: 065

REACTIONS (9)
  - Angioedema [Unknown]
  - Pruritus [Unknown]
  - Injection site urticaria [Unknown]
  - Hypersensitivity [Unknown]
  - Pain [Unknown]
  - Arthralgia [Unknown]
  - Gait inability [Unknown]
  - Condition aggravated [Unknown]
  - Product dose omission issue [Unknown]
